FAERS Safety Report 4796793-4 (Version None)
Quarter: 2005Q3

REPORT INFORMATION
  Report Type: 
  Country: None (occurrence: None)
  Receive Date: 20050916
  Receipt Date: 20050329
  Transmission Date: 20060218
  Serious: Yes (Other)
  Sender: FDA-Public Use
  Company Number: US-JNJFOC-20050307487

PATIENT
  Age: 42 Year
  Sex: Male

DRUGS (7)
  1. TOPAMAX [Suspect]
     Indication: BIPOLAR DISORDER
     Dosage: 150 MG, IN 1 DAY, ORAL
     Route: 048
  2. DEPAKOTE [Suspect]
     Indication: DRUG USE FOR UNKNOWN INDICATION
  3. SEROQUIL (QUETIAPINE FUMARATE) [Concomitant]
  4. INDERAL [Concomitant]
  5. KLONOPIN [Concomitant]
  6. COUMADIN [Concomitant]
  7. LACTULOSE [Concomitant]

REACTIONS (1)
  - AMMONIA INCREASED [None]
